FAERS Safety Report 13943111 (Version 1)
Quarter: 2017Q3

REPORT INFORMATION
  Report Type: Spontaneous
  Country: DE (occurrence: DE)
  Receive Date: 20170907
  Receipt Date: 20170907
  Transmission Date: 20171128
  Serious: Yes (Other)
  Sender: FDA-Public Use
  Company Number: DE-JNJFOC-20170905297

PATIENT
  Age: 70 Year
  Sex: Male

DRUGS (2)
  1. XARELTO [Suspect]
     Active Substance: RIVAROXABAN
     Indication: ATRIAL FIBRILLATION
     Route: 048
  2. APIXABAN [Concomitant]
     Active Substance: APIXABAN
     Route: 065

REACTIONS (3)
  - Cerebrovascular accident [Unknown]
  - Off label use [Unknown]
  - Cerebral artery occlusion [Unknown]
